FAERS Safety Report 25817320 (Version 1)
Quarter: 2025Q3

REPORT INFORMATION
  Report Type: Spontaneous
  Country: US (occurrence: US)
  Receive Date: 20250918
  Receipt Date: 20250918
  Transmission Date: 20251021
  Serious: No
  Sender: PFIZER
  Company Number: US-PFIZER INC-202500182584

PATIENT

DRUGS (3)
  1. SPIRONOLACTONE [Suspect]
     Active Substance: SPIRONOLACTONE
  2. GABAPENTIN [Suspect]
     Active Substance: GABAPENTIN
  3. TORSEMIDE [Suspect]
     Active Substance: TORSEMIDE

REACTIONS (2)
  - Swelling [Unknown]
  - Abdominal distension [Unknown]
